FAERS Safety Report 23545498 (Version 1)
Quarter: 2024Q1

REPORT INFORMATION
  Report Type: Spontaneous
  Country: JP (occurrence: JP)
  Receive Date: 20240220
  Receipt Date: 20240220
  Transmission Date: 20240409
  Serious: Yes (Other)
  Sender: FDA-Public Use
  Company Number: JP-PFIZER INC-202400042948

PATIENT
  Age: 80 Year
  Sex: Male

DRUGS (2)
  1. TAFAMIDIS [Suspect]
     Active Substance: TAFAMIDIS
     Indication: Cardiac amyloidosis
     Dosage: 61 MG, 1X/DAY
  2. TAFAMIDIS [Suspect]
     Active Substance: TAFAMIDIS
     Dosage: 20 MG, 1X/DAY

REACTIONS (1)
  - Cardiac failure [Unknown]
